FAERS Safety Report 10530612 (Version 1)
Quarter: 2014Q4

REPORT INFORMATION
  Report Type: Spontaneous
  Country: US (occurrence: None)
  Receive Date: 20141020
  Receipt Date: 20141020
  Transmission Date: 20150528
  Serious: No
  Sender: FDA-Public Use
  Company Number: None

PATIENT
  Age: 68 Year
  Sex: Male

DRUGS (1)
  1. NEXAVAR [Suspect]
     Active Substance: SORAFENIB
     Indication: HEPATIC CANCER
     Dosage: TWO TABLETS TWICE A DAY BY MOUTH
     Route: 048
     Dates: start: 20140922, end: 20141001

REACTIONS (1)
  - Skin reaction [None]

NARRATIVE: CASE EVENT DATE: 20141001
